FAERS Safety Report 6221522-7 (Version None)
Quarter: 2009Q2

REPORT INFORMATION
  Report Type: 
  Country: None (occurrence: None)
  Receive Date: 20090610
  Receipt Date: 20090602
  Transmission Date: 20091009
  Serious: Yes (Hospitalization)
  Sender: FDA-Public Use
  Company Number: PHHY2009CA21057

PATIENT
  Sex: Male

DRUGS (1)
  1. ZOMETA [Suspect]
     Indication: PROSTATE CANCER METASTATIC
     Dosage: 4 MG, EVERY 12 WEEKS
     Route: 042
     Dates: start: 20090123, end: 20090418

REACTIONS (2)
  - GENERAL PHYSICAL HEALTH DETERIORATION [None]
  - VERTIGO [None]
